FAERS Safety Report 4274545-1 (Version None)
Quarter: 2004Q1

REPORT INFORMATION
  Report Type: 
  Country: None (occurrence: None)
  Receive Date: 20040115
  Receipt Date: 20030124
  Transmission Date: 20041129
  Serious: Yes (Life-Threatening, Hospitalization)
  Sender: FDA-Public Use
  Company Number: 2001-FF-02114FF (1)

PATIENT
  Age: 44 Year
  Sex: Male

DRUGS (5)
  1. VIRAMUNE [Suspect]
     Indication: HIV INFECTION
     Dosage: 400 MG (200 MG) PO
     Route: 048
     Dates: start: 20001130
  2. CRIXIVAN [Concomitant]
  3. NORVIR [Concomitant]
  4. EPIVIR [Concomitant]
  5. LIPANOR (CIPROFIBRATE) (KA) [Concomitant]

REACTIONS (2)
  - CORONARY ARTERY ATHEROSCLEROSIS [None]
  - MYOCARDIAL INFARCTION [None]
